FAERS Safety Report 17862714 (Version 1)
Quarter: 2020Q2

REPORT INFORMATION
  Report Type: Spontaneous
  Country: US (occurrence: US)
  Receive Date: 20200604
  Receipt Date: 20200604
  Transmission Date: 20200714
  Serious: No
  Sender: FDA-Public Use
  Company Number: US-FOUNDATIONCONSUMERHC-2020-US-005515

PATIENT
  Age: 24 Year
  Sex: Female
  Weight: 81.65 kg

DRUGS (2)
  1. TAKE ACTION [Suspect]
     Active Substance: LEVONORGESTREL
     Indication: POST COITAL CONTRACEPTION
     Dosage: 1.5MG  X2
     Route: 048
     Dates: start: 20200106, end: 20200311
  2. FLAXSEED [Concomitant]
     Active Substance: FLAX SEED

REACTIONS (4)
  - Abdominal pain lower [Not Recovered/Not Resolved]
  - Menstruation delayed [Recovered/Resolved]
  - Vaginal haemorrhage [Recovered/Resolved]
  - Menorrhagia [Recovered/Resolved]

NARRATIVE: CASE EVENT DATE: 202001
